FAERS Safety Report 25810037 (Version 1)
Quarter: 2025Q3

REPORT INFORMATION
  Report Type: Report from Study
  Country: MX (occurrence: MX)
  Receive Date: 20250917
  Receipt Date: 20250917
  Transmission Date: 20251021
  Serious: Yes (Hospitalization, Disabling)
  Sender: ABBVIE
  Company Number: MX-ABBVIE-6458868

PATIENT
  Age: 15 Year
  Sex: Female
  Weight: 51 kg

DRUGS (3)
  1. HUMIRA [Suspect]
     Active Substance: ADALIMUMAB
     Indication: Juvenile idiopathic arthritis
     Dosage: 40 MILLIGRAM
     Route: 058
     Dates: start: 20250710
  2. PREGABALIN [Concomitant]
     Active Substance: PREGABALIN
     Indication: Autonomic nervous system imbalance
  3. VENLAFAXINE [Concomitant]
     Active Substance: VENLAFAXINE HYDROCHLORIDE
     Indication: Autonomic nervous system imbalance
     Route: 048

REACTIONS (10)
  - Peripheral swelling [Unknown]
  - Injection site mass [Not Recovered/Not Resolved]
  - Hypovitaminosis [Not Recovered/Not Resolved]
  - Gastrointestinal disorder [Not Recovered/Not Resolved]
  - Injection site pain [Not Recovered/Not Resolved]
  - Skin exfoliation [Recovering/Resolving]
  - Nausea [Recovered/Resolved]
  - Injection site warmth [Unknown]
  - Injection site erythema [Not Recovered/Not Resolved]
  - Diarrhoea [Not Recovered/Not Resolved]

NARRATIVE: CASE EVENT DATE: 20250101
